FAERS Safety Report 7468338-1 (Version None)
Quarter: 2011Q2

REPORT INFORMATION
  Report Type: 
  Country: None (occurrence: None)
  Receive Date: 20110509
  Receipt Date: 20110503
  Transmission Date: 20111010
  Serious: Yes (Other)
  Sender: FDA-Public Use
  Company Number: PHHY2011BG37648

PATIENT
  Sex: Female

DRUGS (3)
  1. CERTICAN [Suspect]
     Indication: PROPHYLAXIS AGAINST TRANSPLANT REJECTION
     Dosage: 75 MG, BID
     Dates: start: 20070902
  2. EQUORAL [Concomitant]
     Dosage: 75 MG
     Dates: start: 20070101
  3. PREDNISOLONE [Concomitant]
     Dosage: 5 MG,

REACTIONS (1)
  - FOOT FRACTURE [None]
